FAERS Safety Report 7146723-5 (Version None)
Quarter: 2010Q4

REPORT INFORMATION
  Report Type: 
  Country: None (occurrence: None)
  Receive Date: 20101208
  Receipt Date: 20101207
  Transmission Date: 20110411
  Serious: Yes (Disabling, Other)
  Sender: FDA-Public Use
  Company Number: US-MERCK-0706USA00955

PATIENT
  Age: 61 Year
  Sex: Female

DRUGS (1)
  1. FOSAMAX [Suspect]
     Indication: OSTEOPOROSIS
     Route: 048
     Dates: start: 19990701, end: 20060501

REACTIONS (11)
  - ADVERSE DRUG REACTION [None]
  - BONE DENSITY DECREASED [None]
  - CARDIAC DISORDER [None]
  - DIZZINESS [None]
  - EXOSTOSIS [None]
  - GASTRIC DISORDER [None]
  - OSTEOARTHRITIS [None]
  - OSTEOMYELITIS [None]
  - SLEEP APNOEA SYNDROME [None]
  - TINNITUS [None]
  - TOOTH LOSS [None]
